FAERS Safety Report 12166579 (Version 2)
Quarter: 2016Q1

REPORT INFORMATION
  Report Type: Spontaneous
  Country: TH (occurrence: TH)
  Receive Date: 20160309
  Receipt Date: 20160311
  Transmission Date: 20160526
  Serious: Yes (Death, Hospitalization, Other)
  Sender: FDA-Public Use
  Company Number: PHHY2016TH028289

PATIENT
  Age: 50 Year
  Sex: Female

DRUGS (6)
  1. PROPOFOL. [Concomitant]
     Active Substance: PROPOFOL
     Indication: ANAESTHESIA
     Route: 065
  2. DESFLURANE. [Concomitant]
     Active Substance: DESFLURANE
     Indication: ANAESTHESIA
     Route: 065
  3. FENTANYL. [Concomitant]
     Active Substance: FENTANYL
     Indication: ANAESTHESIA
     Route: 065
  4. LIDOCAINE. [Concomitant]
     Active Substance: LIDOCAINE
     Indication: ANAESTHESIA
     Route: 065
  5. CISATRACURIUM. [Concomitant]
     Active Substance: CISATRACURIUM
     Indication: ANAESTHESIA
     Route: 065
  6. CEFAZOLIN [Suspect]
     Active Substance: CEFAZOLIN
     Indication: PROPHYLAXIS
     Dosage: 1 G, UNK
     Route: 042

REACTIONS (5)
  - Oedema [Not Recovered/Not Resolved]
  - Multiple organ dysfunction syndrome [Fatal]
  - Neurogenic shock [Not Recovered/Not Resolved]
  - Brain oedema [Fatal]
  - Anaphylactic reaction [Not Recovered/Not Resolved]
